FAERS Safety Report 10081551 (Version 1)
Quarter: 2014Q2

REPORT INFORMATION
  Report Type: Spontaneous
  Country: US (occurrence: US)
  Receive Date: 20140416
  Receipt Date: 20140416
  Transmission Date: 20141212
  Serious: No
  Sender: FDA-Public Use
  Company Number: US-PFIZER INC-2014103983

PATIENT
  Age: 73 Year
  Sex: Male
  Weight: 117.91 kg

DRUGS (2)
  1. GABAPENTIN [Suspect]
     Indication: DIABETIC NEUROPATHY
     Dosage: 400 MG, 4X/DAY
  2. GABAPENTIN [Suspect]
     Dosage: 800 MG, UNK
     Dates: end: 2012

REACTIONS (1)
  - Drug ineffective for unapproved indication [Unknown]
